FAERS Safety Report 9247739 (Version 1)
Quarter: 2013Q1

REPORT INFORMATION
  Report Type: Spontaneous
  Country: US (occurrence: None)
  Receive Date: 20130305
  Receipt Date: 20130305
  Transmission Date: 20140127
  Serious: Yes (Hospitalization)
  Sender: FDA-Public Use
  Company Number: 163-21880-12051406 (0)

PATIENT
  Age: 57 Year
  Sex: Female

DRUGS (6)
  1. REVLIMID [Suspect]
     Indication: PLASMA CELL MYELOMA
     Route: 048
     Dates: start: 20120223
  2. CENTRUM ULTRA WOMENS (CENTRUM) (UNKNOWN) [Concomitant]
  3. COUMADIN (WARFARIN SODIUM) (UNKNOWN) [Concomitant]
  4. CRESTOR (ROSUVASTATIN) (UNKNOWN) [Concomitant]
  5. LYRICA (PREGABALIN) UNKNOWN [Concomitant]
  6. ZOLOFT (SERTRALINE HYDROCHLORIDE) (UNKNOWN) [Concomitant]

REACTIONS (2)
  - Pneumonia [None]
  - Deep vein thrombosis [None]
